FAERS Safety Report 23054747 (Version 1)
Quarter: 2023Q4

REPORT INFORMATION
  Report Type: Report from Study
  Country: US (occurrence: US)
  Receive Date: 20231011
  Receipt Date: 20231011
  Transmission Date: 20240110
  Serious: Yes (Other)
  Sender: FDA-Public Use
  Company Number: US-ABBVIE-5445161

PATIENT
  Sex: Female

DRUGS (1)
  1. RINVOQ [Suspect]
     Active Substance: UPADACITINIB
     Indication: Psoriatic arthropathy
     Route: 048
     Dates: start: 20221001, end: 20230915

REACTIONS (2)
  - Bowen^s disease [Not Recovered/Not Resolved]
  - Sarcoma of skin [Not Recovered/Not Resolved]

NARRATIVE: CASE EVENT DATE: 20230915
